FAERS Safety Report 9209368 (Version 1)
Quarter: 2013Q1

REPORT INFORMATION
  Report Type: Spontaneous
  Country: US (occurrence: None)
  Receive Date: 20120724
  Receipt Date: 20120724
  Transmission Date: 20140127
  Serious: Yes (Other)
  Sender: FDA-Public Use
  Company Number: US-006503

PATIENT
  Age: 16 Year
  Sex: Male

DRUGS (1)
  1. TEV-TROPIN [Suspect]
     Indication: PRODUCT USED FOR UNKNOWN INDICATION
     Route: 058
     Dates: start: 20101113, end: 20110929

REACTIONS (1)
  - Drug administration error [None]
